FAERS Safety Report 8950898 (Version 1)
Quarter: 2012Q4

REPORT INFORMATION
  Report Type: 
  Country: DE (occurrence: DE)
  Receive Date: 20121207
  Receipt Date: 20121207
  Transmission Date: 20130627
  Serious: Yes (Hospitalization)
  Sender: FDA-Public Use
  Company Number: DE-WATSON-2012-20787

PATIENT
  Age: 80 Year
  Sex: Male

DRUGS (16)
  1. SERTRALINE HYDROCHLORIDE (UNKNOWN) [Suspect]
     Indication: PRODUCT USED FOR UNKNOWN INDICATION
     Dosage: 50 mg
     Route: 048
     Dates: start: 20120620, end: 20120621
  2. SERTRALINE HYDROCHLORIDE (UNKNOWN) [Suspect]
     Dosage: 75 mg
     Route: 048
     Dates: start: 20120617, end: 20120619
  3. SERTRALINE HYDROCHLORIDE (UNKNOWN) [Suspect]
     Dosage: 100 mg
     Route: 048
     Dates: start: 20120614, end: 20120616
  4. SERTRALINE HYDROCHLORIDE (UNKNOWN) [Suspect]
     Dosage: 75 mg
     Route: 048
     Dates: start: 20120530, end: 20120601
  5. SERTRALINE HYDROCHLORIDE (UNKNOWN) [Suspect]
     Dosage: 50 mg
     Route: 048
     Dates: start: 20120524, end: 20120529
  6. SERTRALINE HYDROCHLORIDE (UNKNOWN) [Suspect]
     Dosage: 25 mg
     Route: 048
     Dates: start: 20120521, end: 20120523
  7. SERTRALINE HYDROCHLORIDE (UNKNOWN) [Suspect]
     Dosage: 100 mg
     Route: 048
     Dates: start: 20120602, end: 20120607
  8. SERTRALINE HYDROCHLORIDE (UNKNOWN) [Suspect]
     Dosage: 125 mg
     Route: 048
     Dates: start: 20120608, end: 20120613
  9. PANTOZOL [Suspect]
     Indication: PRODUCT USED FOR UNKNOWN INDICATION
     Dosage: 40 mg
     Route: 048
  10. INDAPAMIDE [Suspect]
     Indication: PRODUCT USED FOR UNKNOWN INDICATION
     Dosage: 1.5 mg
     Route: 048
  11. ALDACTONE                          /00006201/ [Suspect]
     Indication: PRODUCT USED FOR UNKNOWN INDICATION
     Dosage: 25 mg
     Route: 048
  12. ACETYLSALICYLIC ACID [Concomitant]
     Indication: PRODUCT USED FOR UNKNOWN INDICATION
     Dosage: 50 mg
     Route: 048
  13. SIMVASTATIN [Concomitant]
     Indication: PRODUCT USED FOR UNKNOWN INDICATION
     Dosage: 20 mg
     Route: 048
     Dates: start: 20121127
  14. MOXONIDINE [Concomitant]
     Indication: PRODUCT USED FOR UNKNOWN INDICATION
     Dosage: 0.2 mg
     Route: 048
  15. DELMUNO [Concomitant]
     Indication: PRODUCT USED FOR UNKNOWN INDICATION
     Dosage: 5/5 mg
     Route: 048
     Dates: start: 20121127, end: 20121127
  16. BISOPROLOL [Concomitant]
     Indication: PRODUCT USED FOR UNKNOWN INDICATION
     Dosage: 5 mg
     Route: 048

REACTIONS (1)
  - Hyponatraemia [Recovered/Resolved]
